FAERS Safety Report 6620903-7 (Version None)
Quarter: 2010Q1

REPORT INFORMATION
  Report Type: 
  Country: None (occurrence: None)
  Receive Date: 20100309
  Receipt Date: 20091218
  Transmission Date: 20100710
  Serious: Yes (Congenital Anomaly)
  Sender: FDA-Public Use
  Company Number: FR-PFIZER INC-2010025896

PATIENT
  Sex: Male

DRUGS (3)
  1. NELFINAVIR MESILATE [Suspect]
     Indication: HIV INFECTION
     Dosage: UNK
     Route: 064
     Dates: start: 20060215
  2. ZIDOVUDINE [Suspect]
     Indication: HIV INFECTION
     Dosage: UNK
     Route: 064
     Dates: start: 20060215
  3. LAMIVUDINE [Suspect]
     Indication: HIV INFECTION
     Dosage: UNK
     Route: 064
     Dates: start: 20060215

REACTIONS (3)
  - DRUG EXPOSURE DURING PREGNANCY [None]
  - MATERNAL DRUGS AFFECTING FOETUS [None]
  - THALASSAEMIA [None]
